FAERS Safety Report 8545270-3 (Version None)
Quarter: 2012Q3

REPORT INFORMATION
  Report Type: 
  Country: None (occurrence: None)
  Receive Date: 20120727
  Receipt Date: 20120716
  Transmission Date: 20120928
  Serious: Yes (Hospitalization)
  Sender: FDA-Public Use
  Company Number: BE-BAXTER-2012BAX011616

PATIENT
  Sex: Female
  Weight: 67.7 kg

DRUGS (10)
  1. EPIRUBICIN HYDROCHLORIDE [Suspect]
     Route: 042
     Dates: start: 20120524
  2. NOBITEN [Concomitant]
     Route: 065
     Dates: start: 20120712
  3. PANTOPRAZOLE [Concomitant]
     Route: 065
  4. CYCLOPHOSPHAMIDE [Suspect]
     Route: 042
     Dates: start: 20120524
  5. FLUOROURACIL [Suspect]
     Route: 042
     Dates: start: 20120412
  6. EPIRUBICIN HYDROCHLORIDE [Suspect]
     Route: 042
     Dates: start: 20120412
  7. SIMVASTATINE EG [Concomitant]
     Route: 065
     Dates: start: 20120712
  8. CYCLOPHOSPHAMIDE [Suspect]
     Route: 042
     Dates: start: 20120412
  9. FLUOROURACIL [Suspect]
     Route: 042
     Dates: start: 20120524
  10. ESCITALOPRAM OXALATE [Concomitant]
     Route: 065
     Dates: start: 20120712

REACTIONS (4)
  - THROMBOCYTOPENIA [None]
  - FEBRILE NEUTROPENIA [None]
  - NEUTROPENIA [None]
  - BRONCHITIS [None]
